FAERS Safety Report 12773351 (Version 3)
Quarter: 2021Q4

REPORT INFORMATION
  Report Type: Spontaneous
  Country: US (occurrence: US)
  Receive Date: 20160922
  Receipt Date: 20211112
  Transmission Date: 20220304
  Serious: Yes (Death, Other)
  Sender: FDA-Public Use
  Company Number: US-002147023-PHHY2016US128622

PATIENT
  Age: 24 Year
  Sex: Male

DRUGS (9)
  1. CLOZAPINE [Suspect]
     Active Substance: CLOZAPINE
     Indication: Suicidal ideation
     Dosage: 300 MG, QHS
  2. CLOZAPINE [Suspect]
     Active Substance: CLOZAPINE
     Indication: Somatic delusion
  3. CLOZAPINE [Suspect]
     Active Substance: CLOZAPINE
     Indication: Psychotic disorder
  4. CITALOPRAM [Concomitant]
     Active Substance: CITALOPRAM HYDROBROMIDE
     Indication: Suicidal ideation
     Dosage: 40 MG, QD
  5. CITALOPRAM [Concomitant]
     Active Substance: CITALOPRAM HYDROBROMIDE
     Indication: Somatic delusion
  6. CITALOPRAM [Concomitant]
     Active Substance: CITALOPRAM HYDROBROMIDE
     Indication: Psychotic disorder
  7. MODAFINIL [Concomitant]
     Active Substance: MODAFINIL
     Indication: Suicidal ideation
     Dosage: 200 MG, QD
  8. MODAFINIL [Concomitant]
     Active Substance: MODAFINIL
     Indication: Somatic delusion
  9. MODAFINIL [Concomitant]
     Active Substance: MODAFINIL
     Indication: Psychotic disorder

REACTIONS (5)
  - Completed suicide [Fatal]
  - Rebound effect [Fatal]
  - Psychotic disorder [Fatal]
  - Therapy non-responder [Unknown]
  - Sedation [Unknown]
